FAERS Safety Report 9850588 (Version 1)
Quarter: 2013Q4

REPORT INFORMATION
  Report Type: Spontaneous
  Country: US (occurrence: None)
  Receive Date: 20131226
  Receipt Date: 20131226
  Transmission Date: 20140711
  Serious: Yes (Hospitalization)
  Sender: FDA-Public Use
  Company Number: PHEH2013US006050

PATIENT
  Sex: Female

DRUGS (2)
  1. DIOVAN (VALSARTAN) [Suspect]
     Indication: HYPERTENSION
  2. LOSARTAN (LOSARTAN) [Suspect]
     Route: 048

REACTIONS (1)
  - Blood pressure increased [None]
